FAERS Safety Report 8595024-7 (Version None)
Quarter: 2012Q3

REPORT INFORMATION
  Report Type: 
  Country: None (occurrence: None)
  Receive Date: 20120806
  Receipt Date: 20120806
  Transmission Date: 20120928
  Serious: Yes (Hospitalization)
  Sender: FDA-Public Use
  Company Number: None

PATIENT
  Age: 32 Year
  Sex: Male
  Weight: 99.7913 kg

DRUGS (1)
  1. RISPERDAL [Suspect]
     Dosage: 4 MG TWICE DAILY
     Dates: start: 20120201, end: 20120501

REACTIONS (4)
  - DIZZINESS [None]
  - DISORIENTATION [None]
  - FALL [None]
  - CONFUSIONAL STATE [None]
